FAERS Safety Report 14399518 (Version 2)
Quarter: 2018Q1

REPORT INFORMATION
  Report Type: Spontaneous
  Country: US (occurrence: US)
  Receive Date: 20180117
  Receipt Date: 20180311
  Transmission Date: 20180509
  Serious: Yes (Hospitalization)
  Sender: FDA-Public Use
  Company Number: US-JNJFOC-20180104816

PATIENT
  Age: 72 Year
  Sex: Female

DRUGS (4)
  1. XARELTO [Suspect]
     Active Substance: RIVAROXABAN
     Indication: DEEP VEIN THROMBOSIS
     Route: 048
     Dates: start: 20140303, end: 20140520
  2. XARELTO [Suspect]
     Active Substance: RIVAROXABAN
     Indication: PULMONARY EMBOLISM
     Route: 048
     Dates: start: 20140303, end: 20140520
  3. WARFARIN [Suspect]
     Active Substance: WARFARIN
     Indication: THROMBOSIS
     Route: 048
     Dates: start: 201406
  4. WARFARIN [Suspect]
     Active Substance: WARFARIN
     Indication: THROMBOSIS
     Route: 048
     Dates: start: 2014, end: 201405

REACTIONS (1)
  - Gastrointestinal haemorrhage [Recovered/Resolved]

NARRATIVE: CASE EVENT DATE: 201405
